APPROVED DRUG PRODUCT: LEVOBUNOLOL HYDROCHLORIDE
Active Ingredient: LEVOBUNOLOL HYDROCHLORIDE
Strength: 0.25%
Dosage Form/Route: SOLUTION/DROPS;OPHTHALMIC
Application: A075473 | Product #001
Applicant: APOTEX INC
Approved: Aug 3, 2000 | RLD: No | RS: No | Type: DISCN